FAERS Safety Report 8156092-X (Version None)
Quarter: 2012Q1

REPORT INFORMATION
  Report Type: 
  Country: None (occurrence: None)
  Receive Date: 20120103
  Receipt Date: 20111013
  Transmission Date: 20120608
  Serious: No
  Sender: FDA-Public Use
  Company Number: AE-2011-000859

PATIENT
  Age: 55 Year
  Sex: Male

DRUGS (5)
  1. RIBAVIRIN [Concomitant]
  2. INCIVEK [Suspect]
     Dosage: 2250 MG (750 MG, 3 IN 1 D), ORAL
     Route: 048
     Dates: start: 20110729
  3. CALTRATE/D (LEKOVIT CA) [Concomitant]
  4. VITAMIN D [Concomitant]
  5. PEG-INTRON [Concomitant]

REACTIONS (6)
  - FATIGUE [None]
  - PYREXIA [None]
  - MALAISE [None]
  - HEADACHE [None]
  - DYSPHONIA [None]
  - CHILLS [None]
